FAERS Safety Report 10256441 (Version 1)
Quarter: 2014Q2

REPORT INFORMATION
  Report Type: Spontaneous
  Country: US (occurrence: US)
  Receive Date: 20140624
  Receipt Date: 20140624
  Transmission Date: 20141212
  Serious: No
  Sender: FDA-Public Use
  Company Number: US-ZOGENIX, INC.-2012ZX000194

PATIENT
  Age: 60 Year
  Sex: Female
  Weight: 47.67 kg

DRUGS (4)
  1. SUMAVEL DOSEPRO [Suspect]
     Indication: MIGRAINE
     Dates: start: 2011
  2. SUMAVEL DOSEPRO [Suspect]
     Dates: start: 20120526, end: 20120526
  3. TOPAMAX [Concomitant]
     Indication: MIGRAINE
  4. IMITREX [Concomitant]
     Indication: MIGRAINE

REACTIONS (4)
  - Injection site bruising [Not Recovered/Not Resolved]
  - Injection site haemorrhage [Recovered/Resolved]
  - Injection site urticaria [Recovering/Resolving]
  - Injection site pain [Recovered/Resolved]
